FAERS Safety Report 11071491 (Version 1)
Quarter: 2015Q2

REPORT INFORMATION
  Report Type: Spontaneous
  Country: CA (occurrence: None)
  Receive Date: 20150424
  Receipt Date: 20150424
  Transmission Date: 20150821
  Serious: Yes (Disabling)
  Sender: FDA-Public Use
  Company Number: 2015-1238-SPO

PATIENT
  Age: 51 Year
  Sex: Female
  Weight: 61.22 kg

DRUGS (2)
  1. ESTROGEL [Suspect]
     Active Substance: ESTRADIOL
     Indication: HOT FLUSH
  2. PROMETRIUM (PROGESTERONE) CAPSULE [Concomitant]

REACTIONS (7)
  - Dyskinesia [None]
  - Back pain [None]
  - Neck pain [None]
  - Hypoaesthesia [None]
  - Muscle spasms [None]
  - Facial spasm [None]
  - Arthralgia [None]
